FAERS Safety Report 8280872-3 (Version None)
Quarter: 2012Q2

REPORT INFORMATION
  Report Type: 
  Country: None (occurrence: None)
  Receive Date: 20120412
  Receipt Date: 20120410
  Transmission Date: 20120825
  Serious: Yes (Hospitalization)
  Sender: FDA-Public Use
  Company Number: BE-ABBOTT-12P-013-0923189-00

PATIENT
  Age: 84 Year
  Sex: Male

DRUGS (1)
  1. LUCRIN TRIDEPOT [Suspect]
     Indication: PROSTATE CANCER
     Dates: start: 20110415, end: 20120118

REACTIONS (4)
  - LUNG INFECTION PSEUDOMONAL [None]
  - GENERAL PHYSICAL HEALTH DETERIORATION [None]
  - GAIT DISTURBANCE [None]
  - AMNESIA [None]
